FAERS Safety Report 6855118-0 (Version None)
Quarter: 2010Q3

REPORT INFORMATION
  Report Type: 
  Country: None (occurrence: None)
  Receive Date: 20100717
  Receipt Date: 20081125
  Transmission Date: 20110219
  Serious: Yes (Other)
  Sender: FDA-Public Use
  Company Number: US-PFIZER INC-2007108648

PATIENT
  Age: 52 Year
  Sex: Male
  Weight: 140.59 kg

DRUGS (3)
  1. CHANTIX [Suspect]
     Indication: SMOKING CESSATION THERAPY
     Dosage: 0.5 MG, 1X/DAY
     Route: 048
     Dates: start: 20060916, end: 20060918
  2. QVAR 40 [Concomitant]
     Indication: ASTHMA
  3. LISINOPRIL [Concomitant]
     Indication: HYPERTENSION

REACTIONS (3)
  - DYSPNOEA [None]
  - NAUSEA [None]
  - SOMNOLENCE [None]
